FAERS Safety Report 11076091 (Version 2)
Quarter: 2015Q2

REPORT INFORMATION
  Report Type: Spontaneous
  Country: US (occurrence: US)
  Receive Date: 20150429
  Receipt Date: 20150511
  Transmission Date: 20150821
  Serious: Yes (Hospitalization)
  Sender: FDA-Public Use
  Company Number: US-LPDUSPRD-20150246

PATIENT
  Age: 36 Year
  Sex: Female
  Weight: 52.16 kg

DRUGS (9)
  1. OFIRMEV [Suspect]
     Active Substance: ACETAMINOPHEN
     Dosage: 1000 MG EVERY 6 HOURS
     Route: 042
  2. CIPROFLOXACIN. [Suspect]
     Active Substance: CIPROFLOXACIN
     Dosage: DOSE NOT PROVIDED
     Route: 065
  3. MORPHINE [Suspect]
     Active Substance: MORPHINE
     Dosage: DOSE NOT PROVIDED
     Route: 065
  4. ONDANSETRON INJECTION, USP (4402-25) [Suspect]
     Active Substance: ONDANSETRON
     Dosage: DOSE NOT PROVIDED
     Route: 065
  5. PIPERACILLIN/TAZOBACTAM [Suspect]
     Active Substance: PIPERACILLIN SODIUM\TAZOBACTAM SODIUM
     Dosage: DOSE NOT PROVIDED
     Route: 065
  6. KETOROLAC TROMETHAMINE INJECTION, USP (0601-25) 15 MG/ML [Suspect]
     Active Substance: KETOROLAC TROMETHAMINE
     Dosage: DOSE NOT PROVIDED
     Route: 065
  7. CEFAZOLIN [Suspect]
     Active Substance: CEFAZOLIN
     Dosage: DOSE NOT PROVIDED
     Route: 065
  8. HYDROMORPHONE [Suspect]
     Active Substance: HYDROMORPHONE
     Dosage: DOSE NOT PROVIDED
     Route: 065
  9. ENOXAPRIN SODIUM [Suspect]
     Active Substance: ENOXAPARIN SODIUM
     Dosage: DOSE NOT PROVIDED
     Route: 065

REACTIONS (3)
  - Acute hepatic failure [Recovered/Resolved]
  - Hypotension [None]
  - Anaemia [None]
